FAERS Safety Report 13784176 (Version 6)
Quarter: 2017Q3

REPORT INFORMATION
  Report Type: Spontaneous
  Country: US (occurrence: US)
  Receive Date: 20170724
  Receipt Date: 20170816
  Transmission Date: 20171127
  Serious: No
  Sender: FDA-Public Use
  Company Number: US-PFIZER INC-2017319929

PATIENT
  Sex: Male

DRUGS (3)
  1. AMLODIPINE BESILATE [Suspect]
     Active Substance: AMLODIPINE BESYLATE
     Dosage: 10 MG, DAILY
  2. ENBREL [Suspect]
     Active Substance: ETANERCEPT
     Dosage: 50 MG, WEEKLY
  3. TOPROL XL [Suspect]
     Active Substance: METOPROLOL SUCCINATE
     Dosage: 50 MG, 2X/DAY

REACTIONS (9)
  - Haematocrit decreased [Unknown]
  - Arthralgia [Not Recovered/Not Resolved]
  - White blood cell count increased [Unknown]
  - Haemoglobin decreased [Unknown]
  - Albumin globulin ratio decreased [Unknown]
  - C-reactive protein increased [Unknown]
  - Joint swelling [Not Recovered/Not Resolved]
  - Skin ulcer [Not Recovered/Not Resolved]
  - Red blood cell sedimentation rate increased [Unknown]
